FAERS Safety Report 5825742-2 (Version None)
Quarter: 2008Q3

REPORT INFORMATION
  Report Type: 
  Country: None (occurrence: None)
  Receive Date: 20080729
  Receipt Date: 20080715
  Transmission Date: 20090109
  Serious: Yes (Hospitalization)
  Sender: FDA-Public Use
  Company Number: US-MERCK-0806USA02688

PATIENT
  Age: 42 Year
  Sex: Male
  Weight: 58 kg

DRUGS (10)
  1. ISENTRESS [Suspect]
     Indication: HIV INFECTION
     Route: 048
     Dates: start: 20080611, end: 20080612
  2. REYATAZ [Concomitant]
     Indication: HIV INFECTION
     Route: 048
     Dates: start: 20080611, end: 20080612
  3. NORVIR [Concomitant]
     Indication: HIV INFECTION
     Route: 048
     Dates: start: 20080611, end: 20080612
  4. TRUVADA [Concomitant]
     Indication: HIV INFECTION
     Route: 048
     Dates: start: 20080611, end: 20080612
  5. DIFLUCAN [Concomitant]
     Indication: OPPORTUNISTIC INFECTION
     Route: 048
     Dates: start: 20080611, end: 20080612
  6. HEPARIN [Concomitant]
     Route: 065
  7. BACTRIM [Concomitant]
     Indication: OPPORTUNISTIC INFECTION PROPHYLAXIS
     Route: 048
     Dates: start: 20080611, end: 20080612
  8. FLOMAX [Concomitant]
     Route: 065
  9. ZITHROMAX [Concomitant]
     Indication: OPPORTUNISTIC INFECTION PROPHYLAXIS
     Route: 048
     Dates: start: 20080611, end: 20080612
  10. ENOXAPARIN SODIUM [Concomitant]
     Indication: THROMBOSIS PROPHYLAXIS
     Route: 048
     Dates: start: 20080611

REACTIONS (1)
  - HYPERKALAEMIA [None]
